FAERS Safety Report 9292217 (Version 2)
Quarter: 2013Q3

REPORT INFORMATION
  Report Type: Spontaneous
  Country: NO (occurrence: NO)
  Receive Date: 20130516
  Receipt Date: 20130725
  Transmission Date: 20140515
  Serious: Yes (Death)
  Sender: FDA-Public Use
  Company Number: NO-ACCORD-017584

PATIENT
  Age: 66 Year
  Sex: Female

DRUGS (2)
  1. GEMCITABINE [Suspect]
     Indication: PANCREATIC CARCINOMA
     Dosage: TOTAL OF 21 DOSES
     Route: 042
     Dates: start: 20100916, end: 20110407
  2. VENTOLINE [Concomitant]
     Dosage: AS NECESSARY
     Route: 055

REACTIONS (3)
  - Capillary leak syndrome [Fatal]
  - Left ventricular failure [Not Recovered/Not Resolved]
  - Renal failure [Not Recovered/Not Resolved]
